FAERS Safety Report 8195637-0 (Version None)
Quarter: 2012Q1

REPORT INFORMATION
  Report Type: 
  Country: None (occurrence: None)
  Receive Date: 20120308
  Receipt Date: 20120305
  Transmission Date: 20120608
  Serious: Yes (Other)
  Sender: FDA-Public Use
  Company Number: US-PFIZER INC-2012058837

PATIENT
  Sex: Female
  Weight: 97.506 kg

DRUGS (1)
  1. LYRICA [Suspect]
     Indication: NEUROPATHY PERIPHERAL
     Dosage: 50 MG, 2X/DAY
     Dates: end: 20120101

REACTIONS (2)
  - EXPIRED DRUG ADMINISTERED [None]
  - TENDON INJURY [None]
